FAERS Safety Report 8464614-4 (Version None)
Quarter: 2012Q2

REPORT INFORMATION
  Report Type: 
  Country: None (occurrence: None)
  Receive Date: 20120620
  Receipt Date: 20120620
  Transmission Date: 20120825
  Serious: Yes (Other)
  Sender: FDA-Public Use
  Company Number: None

PATIENT
  Age: 61 Year
  Sex: Male
  Weight: 131.5431 kg

DRUGS (1)
  1. CLOPIDOGREL BISULFATE [Suspect]
     Dosage: 75MG  1 DAILY PO
     Route: 048
     Dates: start: 20120618, end: 20120618

REACTIONS (3)
  - ERUCTATION [None]
  - PRODUCT SUBSTITUTION ISSUE [None]
  - PRODUCT TASTE ABNORMAL [None]
